FAERS Safety Report 18673543 (Version 1)
Quarter: 2020Q4

REPORT INFORMATION
  Report Type: Spontaneous
  Country: NL (occurrence: NL)
  Receive Date: 20201229
  Receipt Date: 20201229
  Transmission Date: 20210114
  Serious: Yes (Other)
  Sender: FDA-Public Use
  Company Number: NL-BAUSCH-BL-2020-037764

PATIENT
  Sex: Female

DRUGS (11)
  1. PONATINIB [Concomitant]
     Active Substance: PONATINIB
     Route: 065
     Dates: start: 20200402, end: 202005
  2. PONATINIB [Concomitant]
     Active Substance: PONATINIB
     Route: 065
     Dates: start: 20190320
  3. PONATINIB [Concomitant]
     Active Substance: PONATINIB
     Dosage: 15 MG
     Route: 065
     Dates: start: 202011
  4. ELTROMBOPAG [Concomitant]
     Active Substance: ELTROMBOPAG
     Route: 065
     Dates: start: 20190423
  5. PREDNISOLONE. [Suspect]
     Active Substance: PREDNISOLONE
     Indication: PRODUCT USED FOR UNKNOWN INDICATION
     Route: 065
     Dates: start: 20190416, end: 20190423
  6. PONATINIB [Concomitant]
     Active Substance: PONATINIB
     Route: 065
     Dates: start: 20200604
  7. ELTROMBOPAG [Concomitant]
     Active Substance: ELTROMBOPAG
     Route: 065
     Dates: start: 20200604
  8. PONATINIB [Concomitant]
     Active Substance: PONATINIB
     Indication: PRODUCT USED FOR UNKNOWN INDICATION
     Route: 065
     Dates: start: 20181231, end: 20190212
  9. ELTROMBOPAG [Concomitant]
     Active Substance: ELTROMBOPAG
     Indication: PRODUCT USED FOR UNKNOWN INDICATION
     Route: 065
     Dates: start: 20200402, end: 202005
  10. ACENOCOUMAROL [Concomitant]
     Active Substance: ACENOCOUMAROL
     Indication: PRODUCT USED FOR UNKNOWN INDICATION
     Route: 065
     Dates: start: 202002
  11. PONATINIB [Concomitant]
     Active Substance: PONATINIB
     Route: 065
     Dates: start: 20190423, end: 202003

REACTIONS (6)
  - Thrombocytopenia [Unknown]
  - Atrial fibrillation [Unknown]
  - Chest pain [Unknown]
  - Pyrexia [Unknown]
  - Myalgia [Unknown]
  - Haematotoxicity [Unknown]

NARRATIVE: CASE EVENT DATE: 20190423
